FAERS Safety Report 10148814 (Version 1)
Quarter: 2014Q2

REPORT INFORMATION
  Report Type: Report from Study
  Country: US (occurrence: US)
  Receive Date: 20140502
  Receipt Date: 20140502
  Transmission Date: 20141212
  Serious: Yes (Hospitalization, Other)
  Sender: FDA-Public Use
  Company Number: US-ROCHE-1390893

PATIENT
  Sex: Female
  Weight: 32.7 kg

DRUGS (15)
  1. VALGANCICLOVIR [Suspect]
     Indication: PRODUCT USED FOR UNKNOWN INDICATION
     Route: 048
  2. NUTROPIN AQ [Suspect]
     Indication: TURNER^S SYNDROME
     Route: 058
  3. NUTROPIN AQ [Suspect]
     Indication: RENAL FAILURE CHRONIC
  4. MYCOPHENOLATE MOFETIL [Suspect]
     Indication: PRODUCT USED FOR UNKNOWN INDICATION
     Route: 048
  5. BACTRIM [Concomitant]
     Dosage: 400 MG-80 MG
     Route: 048
  6. EPOGEN [Concomitant]
     Dosage: 3000 UNITS
     Route: 058
  7. PREDNISOLONE [Concomitant]
     Dosage: 15 MG/5 ML ORAL SYRUP
     Route: 048
  8. AMLODIPINE [Concomitant]
     Route: 048
  9. CALCITRIOL [Concomitant]
     Route: 048
  10. CHOLECALCIFEROL [Concomitant]
     Route: 048
  11. ENALAPRIL [Concomitant]
     Route: 048
  12. FERROUS SULFATE [Concomitant]
     Route: 048
  13. MYCOPHENOLATE MOFETIL [Concomitant]
     Route: 048
  14. RANITIDINE [Concomitant]
     Route: 048
  15. TACROLIMUS [Concomitant]
     Route: 048

REACTIONS (4)
  - Growth retardation [Unknown]
  - Pneumonia [Unknown]
  - Ear infection [Unknown]
  - Drug ineffective [Unknown]
